FAERS Safety Report 7997608-3 (Version None)
Quarter: 2011Q4

REPORT INFORMATION
  Report Type: 
  Country: None (occurrence: None)
  Receive Date: 20111221
  Receipt Date: 20111213
  Transmission Date: 20120403
  Serious: Yes (Other)
  Sender: FDA-Public Use
  Company Number: FR-JNJFOC-20111207928

PATIENT
  Age: 17 Year
  Sex: Male

DRUGS (2)
  1. RISPERDAL CONSTA [Suspect]
     Indication: ABNORMAL BEHAVIOUR
     Dosage: SINCE SEVERAL YEARS
     Route: 030
  2. RISPERDAL CONSTA [Suspect]
     Indication: PSYCHOTIC DISORDER
     Dosage: SINCE SEVERAL YEARS
     Route: 030

REACTIONS (3)
  - DRUG DOSE OMISSION [None]
  - DISSOCIATIVE FUGUE [None]
  - OFF LABEL USE [None]
